FAERS Safety Report 21963859 (Version 1)
Quarter: 2023Q1

REPORT INFORMATION
  Report Type: Spontaneous
  Country: US (occurrence: US)
  Receive Date: 20230207
  Receipt Date: 20230207
  Transmission Date: 20230417
  Serious: No
  Sender: FDA-Public Use
  Company Number: US-SANOFI-01476518

PATIENT
  Age: 36 Year
  Sex: Male

DRUGS (1)
  1. SOLIQUA 100/33 [Suspect]
     Active Substance: INSULIN GLARGINE\LIXISENATIDE
     Indication: Type 2 diabetes mellitus
     Dosage: 48-54 AND DRUG TREATMENT DURATION:4-6 MONTH; QD
     Dates: start: 2022

REACTIONS (2)
  - Illness [Unknown]
  - Blood glucose increased [Unknown]
